FAERS Safety Report 17427371 (Version 1)
Quarter: 2020Q1

REPORT INFORMATION
  Report Type: Spontaneous
  Country: FR (occurrence: FR)
  Receive Date: 20200218
  Receipt Date: 20200218
  Transmission Date: 20200409
  Serious: Yes (Hospitalization)
  Sender: FDA-Public Use
  Company Number: FR-TEVA-2020-FR-1187225

PATIENT
  Sex: Female
  Weight: 62 kg

DRUGS (13)
  1. PHOSPHONEUROS, SOLUTION BUVABLE EN GOUTTES [Concomitant]
     Active Substance: CALCIUM PHOSPHATE, DIBASIC, ANHYDROUS\MAGNESIUM GLYCEROPHOSPHATE\PHOSPHORIC ACID\SODIUM PHOSPHATE, DIBASIC
     Route: 048
  2. POTASSIUM GLUCONATE H2 PHARMA [Concomitant]
     Route: 048
  3. ENOXAPARINE SODIQUE ((MAMMIFERE/PORC/MUQUEUSE INTESTINALE)) [Concomitant]
     Active Substance: ENOXAPARIN SODIUM
     Route: 058
  4. UMULINE [Concomitant]
     Active Substance: INSULIN HUMAN
     Route: 058
  5. CISPLATIN. [Suspect]
     Active Substance: CISPLATIN
     Indication: METASTATIC LYMPHOMA
     Dosage: TPF PROTOCOL CHANGED EVERY 2 WEEKS
     Route: 041
     Dates: start: 20191226, end: 20191226
  6. PAROXETINE. [Concomitant]
     Active Substance: PAROXETINE
     Route: 048
  7. OXAZEPAM. [Concomitant]
     Active Substance: OXAZEPAM
     Route: 048
  8. KARDEGIC [Concomitant]
     Active Substance: ASPIRIN DL-LYSINE
     Route: 048
  9. PARACETAMOL [Concomitant]
     Active Substance: ACETAMINOPHEN
     Route: 048
  10. FLUOROURACIL. [Suspect]
     Active Substance: FLUOROURACIL
     Indication: METASTATIC LYMPHOMA
     Dosage: TPF PROTOCOL CHANGED EVERY 2 WEEKS
     Route: 041
     Dates: start: 20191226, end: 20191227
  11. SIMVASTATINE [Concomitant]
     Active Substance: SIMVASTATIN
     Route: 048
  12. DOCETAXEL. [Suspect]
     Active Substance: DOCETAXEL
     Indication: METASTATIC LYMPHOMA
     Dosage: TPF PROTOCOL CHANGED EVERY 2 WEEKS
     Route: 041
     Dates: start: 20191226, end: 20191226
  13. ACIDE FOLINIQUE [Concomitant]
     Active Substance: LEUCOVORIN
     Route: 041

REACTIONS (2)
  - Hypokalaemia [Recovered/Resolved]
  - Diarrhoea [Not Recovered/Not Resolved]

NARRATIVE: CASE EVENT DATE: 20200107
